FAERS Safety Report 23152150 (Version 34)
Quarter: 2025Q3

REPORT INFORMATION
  Report Type: Report from Study
  Country: JP (occurrence: JP)
  Receive Date: 20231107
  Receipt Date: 20250923
  Transmission Date: 20251021
  Serious: Yes (Hospitalization, Other)
  Sender: TAKEDA
  Company Number: JP-TAKEDA-2023TJP012923

PATIENT
  Sex: Female

DRUGS (8)
  1. ICATIBANT [Suspect]
     Active Substance: ICATIBANT ACETATE
     Indication: Hereditary angioedema
  2. ICATIBANT [Suspect]
     Active Substance: ICATIBANT ACETATE
  3. BERINERT P [Concomitant]
     Active Substance: HUMAN C1-ESTERASE INHIBITOR
     Indication: Hereditary angioedema
  4. BERINERT P [Concomitant]
     Active Substance: HUMAN C1-ESTERASE INHIBITOR
     Dates: start: 20231017, end: 20231017
  5. BERINERT P [Concomitant]
     Active Substance: HUMAN C1-ESTERASE INHIBITOR
     Dosage: UNK UNK, 2/WEEK
     Dates: start: 2023
  6. BERINERT P [Concomitant]
     Active Substance: HUMAN C1-ESTERASE INHIBITOR
     Indication: Prophylaxis
  7. TRANSAMIN [Concomitant]
     Active Substance: TRANEXAMIC ACID
  8. TRANSAMIN [Concomitant]
     Active Substance: TRANEXAMIC ACID

REACTIONS (68)
  - Internal haemorrhage [Unknown]
  - Glaucoma [Unknown]
  - Urinary retention [Unknown]
  - Dental care [Unknown]
  - Weight decreased [Unknown]
  - Rhinorrhoea [Unknown]
  - Vaccination site bruising [Unknown]
  - Anaemia [Unknown]
  - Dental caries [Unknown]
  - Lipoma [Unknown]
  - Malaise [Unknown]
  - Haemangioma [Unknown]
  - Hepatic steatosis [Unknown]
  - Oropharyngeal discomfort [Recovering/Resolving]
  - Coronavirus infection [Unknown]
  - Oropharyngeal pain [Not Recovered/Not Resolved]
  - Pharyngeal paraesthesia [Unknown]
  - Depression [Unknown]
  - Larynx irritation [Recovering/Resolving]
  - Abdominal pain upper [Unknown]
  - Pollakiuria [Unknown]
  - Cystitis [Unknown]
  - Physical deconditioning [Unknown]
  - Parotitis [Unknown]
  - Swelling [Unknown]
  - Oropharyngeal pain [Unknown]
  - Upper-airway cough syndrome [Unknown]
  - Gene mutation [Unknown]
  - Physical deconditioning [Unknown]
  - Sensation of foreign body [Recovering/Resolving]
  - Mite allergy [Unknown]
  - Mite allergy [Unknown]
  - Allergy to metals [Unknown]
  - Allergy to metals [Unknown]
  - Asthma [Unknown]
  - Throat irritation [Unknown]
  - Diarrhoea [Unknown]
  - Laryngoscopy abnormal [Unknown]
  - Diarrhoea [Unknown]
  - Abdominal pain upper [Unknown]
  - Decreased appetite [Unknown]
  - Weight decreased [Unknown]
  - Emotional distress [Unknown]
  - Psychiatric symptom [Unknown]
  - Discouragement [Unknown]
  - Abdominal distension [Unknown]
  - Joint swelling [Unknown]
  - Gingivitis [Recovered/Resolved]
  - Decreased appetite [Unknown]
  - Weight decreased [Unknown]
  - Decreased gait velocity [Unknown]
  - Pharyngeal swelling [Unknown]
  - Abdominal pain upper [Unknown]
  - Injection site haemorrhage [Unknown]
  - Eczema [Unknown]
  - Headache [Unknown]
  - Headache [Unknown]
  - Urticaria [Unknown]
  - Pyrexia [Recovering/Resolving]
  - Hypersensitivity [Unknown]
  - Injection site pain [Unknown]
  - Headache [Unknown]
  - Nausea [Unknown]
  - Headache [Unknown]
  - Drug ineffective [Unknown]
  - Therapeutic product effect incomplete [Unknown]
  - Product administered at inappropriate site [Unknown]
  - Product storage error [Unknown]

NARRATIVE: CASE EVENT DATE: 20230101
